FAERS Safety Report 16082604 (Version 1)
Quarter: 2019Q1

REPORT INFORMATION
  Report Type: Spontaneous
  Country: DE (occurrence: DE)
  Receive Date: 20190318
  Receipt Date: 20190318
  Transmission Date: 20190418
  Serious: Yes (Other)
  Sender: FDA-Public Use
  Company Number: DE-009507513-1902DEU004796

PATIENT
  Sex: Female
  Weight: 70 kg

DRUGS (1)
  1. LORZAAR PROTECT 50MG FILMTABLETTEN [Suspect]
     Active Substance: LOSARTAN
     Indication: ESSENTIAL HYPERTENSION
     Dosage: 50 MILLIGRAM, QD
     Route: 048
     Dates: start: 1995

REACTIONS (5)
  - Arthralgia [Recovered/Resolved]
  - Migraine [Recovered/Resolved]
  - Impaired quality of life [Unknown]
  - Depression suicidal [Recovered/Resolved]
  - Irritable bowel syndrome [Recovered/Resolved]

NARRATIVE: CASE EVENT DATE: 2011
